FAERS Safety Report 5130856-9 (Version None)
Quarter: 2006Q4

REPORT INFORMATION
  Report Type: 
  Country: None (occurrence: None)
  Receive Date: 20061019
  Receipt Date: 20060427
  Transmission Date: 20070319
  Serious: Yes (Death)
  Sender: FDA-Public Use
  Company Number: DE-NOVOPROD-257535

PATIENT
  Age: 22 Year
  Sex: Male

DRUGS (1)
  1. NOVOSEVEN [Suspect]
     Indication: HAEMORRHAGE

REACTIONS (4)
  - DISSEMINATED INTRAVASCULAR COAGULATION [None]
  - EXSANGUINATION [None]
  - HAEMORRHAGE [None]
  - SHOCK HAEMORRHAGIC [None]
